FAERS Safety Report 5578051-3 (Version None)
Quarter: 2007Q4

REPORT INFORMATION
  Report Type: 
  Country: None (occurrence: None)
  Receive Date: 20071231
  Receipt Date: 20071226
  Transmission Date: 20080405
  Serious: Yes (Hospitalization)
  Sender: FDA-Public Use
  Company Number: US-GENENTECH-250076

PATIENT
  Sex: Female

DRUGS (8)
  1. LUCENTIS [Suspect]
     Indication: CHOROIDAL NEOVASCULARISATION
     Dosage: 0.5 MG, UNK
     Route: 031
     Dates: start: 20061212, end: 20070227
  2. LUCENTIS [Suspect]
     Indication: MACULAR DEGENERATION
  3. ASPIRIN [Concomitant]
     Indication: DRUG USE FOR UNKNOWN INDICATION
  4. DIGOXIN [Concomitant]
     Indication: DRUG USE FOR UNKNOWN INDICATION
  5. KLONOPIN [Concomitant]
     Indication: DRUG USE FOR UNKNOWN INDICATION
  6. ZOCOR [Concomitant]
     Indication: DRUG USE FOR UNKNOWN INDICATION
  7. NEXIUM [Concomitant]
     Indication: DRUG USE FOR UNKNOWN INDICATION
  8. ANTIVERT (UNITED STATES) [Concomitant]
     Indication: DRUG USE FOR UNKNOWN INDICATION

REACTIONS (1)
  - CEREBROVASCULAR ACCIDENT [None]
